FAERS Safety Report 9353618 (Version 1)
Quarter: 2013Q2

REPORT INFORMATION
  Report Type: Spontaneous
  Country: US (occurrence: None)
  Receive Date: 20130617
  Receipt Date: 20130617
  Transmission Date: 20140414
  Serious: Yes (Other)
  Sender: FDA-Public Use
  Company Number: None

PATIENT
  Age: 62 Year
  Sex: Male

DRUGS (1)
  1. ATORVASTATIN [Suspect]
     Indication: HIV INFECTION
     Route: 048
     Dates: start: 201303, end: 20130611

REACTIONS (4)
  - Myalgia [None]
  - Arthralgia [None]
  - Arthralgia [None]
  - Product substitution issue [None]
